FAERS Safety Report 25526231 (Version 1)
Quarter: 2025Q3

REPORT INFORMATION
  Report Type: Report from Study
  Country: US (occurrence: US)
  Receive Date: 20250707
  Receipt Date: 20250707
  Transmission Date: 20251020
  Serious: Yes (Death, Hospitalization)
  Sender: PFIZER
  Company Number: US-PFIZER INC-202500044643

PATIENT
  Age: 42 Year
  Sex: Female

DRUGS (8)
  1. LORBRENA [Suspect]
     Active Substance: LORLATINIB
     Indication: Lung cancer metastatic
     Dosage: 100 MG, TAKE 1 TABLET DAILY
     Route: 048
     Dates: start: 20250129
  2. ELIQUIS [Concomitant]
     Active Substance: APIXABAN
  3. METHOCARBAMOL [Concomitant]
     Active Substance: METHOCARBAMOL
  4. METOPROLOL [Concomitant]
     Active Substance: METOPROLOL
  5. MIDODRINE [Concomitant]
     Active Substance: MIDODRINE
  6. PREDNISONE [Concomitant]
     Active Substance: PREDNISONE
  7. SUCRALFATE [Concomitant]
     Active Substance: SUCRALFATE
  8. TUMS [Concomitant]
     Active Substance: CALCIUM CARBONATE

REACTIONS (6)
  - Death [Fatal]
  - Kidney infection [Not Recovered/Not Resolved]
  - Dyspnoea [Not Recovered/Not Resolved]
  - Pneumonia [Recovering/Resolving]
  - Deep vein thrombosis [Recovering/Resolving]
  - Memory impairment [Recovering/Resolving]

NARRATIVE: CASE EVENT DATE: 20250101
